FAERS Safety Report 14764366 (Version 1)
Quarter: 2018Q2

REPORT INFORMATION
  Report Type: Report from Study
  Country: US (occurrence: US)
  Receive Date: 20180416
  Receipt Date: 20180416
  Transmission Date: 20180711
  Serious: Yes (Death)
  Sender: FDA-Public Use
  Company Number: US-ASTELLAS-2018US018145

PATIENT
  Age: 70 Year
  Sex: Male

DRUGS (1)
  1. ISAVUCONAZOLE [Suspect]
     Active Substance: ISAVUCONAZOLE
     Indication: ASPERGILLUS INFECTION
     Dosage: 372 MG (186 MG X 2), ONCE DAILY
     Route: 048
     Dates: start: 20180319, end: 20180406

REACTIONS (1)
  - Death [Fatal]

NARRATIVE: CASE EVENT DATE: 20180406
